FAERS Safety Report 5195064-4 (Version None)
Quarter: 2006Q4

REPORT INFORMATION
  Report Type: 
  Country: None (occurrence: None)
  Receive Date: 20061229
  Receipt Date: 20061227
  Transmission Date: 20070319
  Serious: Yes (Other)
  Sender: FDA-Public Use
  Company Number: US-JNJFOC-20061206703

PATIENT
  Age: 46 Year
  Sex: Male
  Weight: 81.65 kg

DRUGS (3)
  1. EXTRA STRENGTH TYLENOL [Suspect]
     Indication: PYREXIA
     Route: 048
  2. EXTRA STRENGTH TYLENOL [Suspect]
     Indication: HEADACHE
     Route: 048
  3. OTHER UNSPECIFIED MEDICATIONS [Concomitant]

REACTIONS (2)
  - HYPERSENSITIVITY [None]
  - REACTION TO DRUG EXCIPIENTS [None]
